FAERS Safety Report 17262962 (Version 2)
Quarter: 2021Q3

REPORT INFORMATION
  Report Type: Report from Study
  Country: CN (occurrence: CN)
  Receive Date: 20200113
  Receipt Date: 20210802
  Transmission Date: 20211014
  Serious: Yes (Death)
  Sender: FDA-Public Use
  Company Number: CN-PFIZER INC-2020010193

PATIENT

DRUGS (5)
  1. G?CSF [Suspect]
     Active Substance: GRANULOCYTE COLONY-STIMULATING FACTOR NOS
     Indication: ACUTE MYELOID LEUKAEMIA
     Dosage: 300 UG, CYCLIC (300UG/D ON DAY 0)
  2. CYTARABINE. [Suspect]
     Active Substance: CYTARABINE
     Indication: ACUTE MYELOID LEUKAEMIA REFRACTORY
     Dosage: 15 MG/M2, CYCLIC (LOW DOSE; EVERY 12 HOURS ON DAYS DAYS 1?10)
     Route: 058
  3. ATRA [Suspect]
     Active Substance: TRETINOIN
     Indication: ACUTE MYELOID LEUKAEMIA
     Dosage: 45 MG/M2, CYCLIC (ON DAY 4?6)
     Route: 048
  4. ATRA [Suspect]
     Active Substance: TRETINOIN
     Dosage: 15 MG/M2, CYCLIC (DAYS 7?20)
     Route: 048
  5. DECITABINE. [Suspect]
     Active Substance: DECITABINE
     Indication: ACUTE MYELOID LEUKAEMIA
     Dosage: UNK, CYCLIC 0.1?0.2 MG/KG ON DAYS 1?3 ,8?10,15?17
     Route: 058

REACTIONS (1)
  - Haemorrhage [Fatal]
